FAERS Safety Report 23028054 (Version 1)
Quarter: 2023Q4

REPORT INFORMATION
  Report Type: Spontaneous
  Country: CN (occurrence: CN)
  Receive Date: 20231004
  Receipt Date: 20231004
  Transmission Date: 20240110
  Serious: Yes (Hospitalization)
  Sender: FDA-Public Use
  Company Number: CN-002147023-NVSC2023CN211516

PATIENT
  Age: 73 Year
  Sex: Male

DRUGS (2)
  1. GLIVEC [Suspect]
     Active Substance: IMATINIB MESYLATE
     Indication: Gastric cancer
     Dosage: 400 MG, QD
     Route: 048
     Dates: start: 20230901, end: 20230913
  2. GLIVEC [Suspect]
     Active Substance: IMATINIB MESYLATE
     Indication: Lung neoplasm malignant

REACTIONS (5)
  - Generalised oedema [Recovering/Resolving]
  - Cholestasis [Recovering/Resolving]
  - Hepatic enzyme increased [Recovering/Resolving]
  - Hepatic function abnormal [Recovering/Resolving]
  - Pleural effusion [Recovering/Resolving]

NARRATIVE: CASE EVENT DATE: 20230901
